FAERS Safety Report 13341468 (Version 2)
Quarter: 2017Q1

REPORT INFORMATION
  Report Type: Spontaneous
  Country: US (occurrence: US)
  Receive Date: 20170316
  Receipt Date: 20170320
  Transmission Date: 20170428
  Serious: Yes (Hospitalization, Other)
  Sender: FDA-Public Use
  Company Number: US-DRREDDYS-USA/USA/17/0087786

PATIENT
  Sex: Male

DRUGS (2)
  1. IBUPROFEN. [Suspect]
     Active Substance: IBUPROFEN
     Indication: COUGH
     Route: 065
  2. DEXTROMETHORPHAN/GUAIFENESIN [Suspect]
     Active Substance: DEXTROMETHORPHAN\GUAIFENESIN
     Indication: COUGH
     Route: 065

REACTIONS (3)
  - Skin hyperpigmentation [Not Recovered/Not Resolved]
  - Skin lesion [Unknown]
  - Fixed drug eruption [Recovered/Resolved with Sequelae]
